FAERS Safety Report 10890438 (Version 1)
Quarter: 2015Q1

REPORT INFORMATION
  Report Type: Spontaneous
  Country: US (occurrence: US)
  Receive Date: 20150305
  Receipt Date: 20150305
  Transmission Date: 20150721
  Serious: Yes (Hospitalization)
  Sender: FDA-Public Use
  Company Number: US-JNJFOC-20150217892

PATIENT
  Age: 24 Month
  Sex: Male

DRUGS (1)
  1. CHILDRENS BENADRYL ALLERGY [Suspect]
     Active Substance: DIPHENHYDRAMINE HYDROCHLORIDE
     Indication: ACCIDENTAL EXPOSURE TO PRODUCT
     Dosage: 2-3 OUNCES
     Route: 065
     Dates: start: 20141103, end: 20141103

REACTIONS (4)
  - Failure of child resistant mechanism for pharmaceutical product [Unknown]
  - Somnolence [Unknown]
  - Accidental exposure to product by child [Unknown]
  - Dyspnoea [Unknown]

NARRATIVE: CASE EVENT DATE: 20141103
